FAERS Safety Report 7028745-8 (Version None)
Quarter: 2010Q4

REPORT INFORMATION
  Report Type: 
  Country: None (occurrence: None)
  Receive Date: 20101004
  Receipt Date: 20101004
  Transmission Date: 20110411
  Serious: Yes (Death)
  Sender: FDA-Public Use
  Company Number: None

PATIENT
  Age: 21 Year
  Sex: Male
  Weight: 81.6475 kg

DRUGS (1)
  1. BUPROPION 100MG SR [Suspect]
     Indication: POST-TRAUMATIC STRESS DISORDER
     Dates: start: 20090904, end: 20100312

REACTIONS (2)
  - FALL [None]
  - INJURY [None]
